FAERS Safety Report 15450865 (Version 1)
Quarter: 2018Q4

REPORT INFORMATION
  Report Type: Spontaneous
  Country: US (occurrence: US)
  Receive Date: 20181001
  Receipt Date: 20181001
  Transmission Date: 20190204
  Serious: No
  Sender: FDA-Public Use
  Company Number: US-MYLANLABS-2018M1067811

PATIENT
  Sex: Female
  Weight: 76 kg

DRUGS (1)
  1. LIDOCAINE PATCH [Suspect]
     Active Substance: LIDOCAINE
     Indication: BACK INJURY
     Dosage: UNK
     Route: 003
     Dates: start: 2013

REACTIONS (4)
  - Product adhesion issue [Not Recovered/Not Resolved]
  - Off label use [Not Recovered/Not Resolved]
  - Expired product administered [Unknown]
  - Product quality issue [Unknown]
